FAERS Safety Report 23860513 (Version 1)
Quarter: 2024Q2

REPORT INFORMATION
  Report Type: Spontaneous
  Country: RU (occurrence: RU)
  Receive Date: 20240516
  Receipt Date: 20240516
  Transmission Date: 20240716
  Serious: Yes (Life-Threatening)
  Sender: FDA-Public Use
  Company Number: RU-ABBVIE-5761867

PATIENT
  Age: 4 Year
  Sex: Female
  Weight: 13 kg

DRUGS (2)
  1. SEVOFLURANE [Suspect]
     Active Substance: SEVOFLURANE
     Indication: Magnetic resonance imaging
     Dosage: INDUCTION STARTED AT A DOSE OF 8 VOL PERCENT, AND AT 5TH MINUTE BASIC ANESTHESIA BECAME AT DOSE O...
     Route: 055
     Dates: start: 20240410, end: 20240410
  2. GADOTERATE MEGLUMINE [Suspect]
     Active Substance: GADOTERATE MEGLUMINE
     Indication: Magnetic resonance imaging
     Dosage: 0.2 ML/KG?ONCE
     Route: 040
     Dates: start: 20240410, end: 20240410

REACTIONS (2)
  - Cardio-respiratory arrest [Recovering/Resolving]
  - Bradyarrhythmia [Recovering/Resolving]

NARRATIVE: CASE EVENT DATE: 20240410
